FAERS Safety Report 21482501 (Version 1)
Quarter: 2022Q4

REPORT INFORMATION
  Report Type: Spontaneous
  Country: US (occurrence: US)
  Receive Date: 20221020
  Receipt Date: 20221020
  Transmission Date: 20230113
  Serious: No
  Sender: FDA-Public Use
  Company Number: US-ALLERGAN-2209892US

PATIENT
  Age: 74 Year
  Sex: Female
  Weight: 86.182 kg

DRUGS (10)
  1. LINZESS [Suspect]
     Active Substance: LINACLOTIDE
     Indication: Constipation
     Dosage: 72 ?G
     Route: 048
     Dates: start: 20220321
  2. LINZESS [Suspect]
     Active Substance: LINACLOTIDE
     Indication: Gastrointestinal disorder
     Dosage: 72 ?G
     Route: 048
     Dates: start: 20220318, end: 20220318
  3. LISINOPRIL [Concomitant]
     Active Substance: LISINOPRIL
     Indication: Renal disorder prophylaxis
     Dosage: 2.5 MG, QHS
     Route: 048
  4. ATENOLOL [Concomitant]
     Active Substance: ATENOLOL
     Dosage: 25 MG
  5. OXYGEN [Concomitant]
     Active Substance: OXYGEN
  6. DULOXETINE [Concomitant]
     Active Substance: DULOXETINE
  7. COVID-19 VACCINE [Concomitant]
     Dosage: UNK UNK, SINGLE
     Route: 030
     Dates: start: 202110, end: 202110
  8. COVID-19 VACCINE [Concomitant]
     Dosage: UNK UNK, SINGLE
     Route: 030
     Dates: start: 202109, end: 202109
  9. UNSPECIFIED INGREDIENT [Concomitant]
     Active Substance: UNSPECIFIED INGREDIENT
     Indication: Migraine
  10. nerve pill [Concomitant]

REACTIONS (16)
  - Illness [Not Recovered/Not Resolved]
  - Inappropriate schedule of product administration [Unknown]
  - Malaise [Not Recovered/Not Resolved]
  - Asthenia [Not Recovered/Not Resolved]
  - Abdominal discomfort [Not Recovered/Not Resolved]
  - Gastrointestinal disorder [Unknown]
  - Atrioventricular block [Unknown]
  - Chest pain [Not Recovered/Not Resolved]
  - Cholelithiasis [Unknown]
  - Biliary colic [Unknown]
  - Dyspepsia [Recovered/Resolved]
  - Abdominal pain [Not Recovered/Not Resolved]
  - Vomiting [Recovered/Resolved]
  - Diarrhoea [Recovered/Resolved]
  - Abdominal pain upper [Not Recovered/Not Resolved]
  - Pain [Not Recovered/Not Resolved]

NARRATIVE: CASE EVENT DATE: 20220320
